FAERS Safety Report 9252703 (Version 1)
Quarter: 2013Q2

REPORT INFORMATION
  Report Type: Spontaneous
  Country: IT (occurrence: IT)
  Receive Date: 20130424
  Receipt Date: 20130424
  Transmission Date: 20140414
  Serious: Yes (Hospitalization)
  Sender: FDA-Public Use
  Company Number: IT-ASTRAZENECA-2013SE25484

PATIENT
  Age: 8315 Day
  Sex: Male

DRUGS (2)
  1. SEROQUEL XR [Suspect]
     Indication: SEDATION
     Route: 048
     Dates: start: 20130411, end: 20130411
  2. EN [Concomitant]
     Indication: SEDATION
     Route: 048
     Dates: start: 20130411, end: 20130411

REACTIONS (3)
  - Drug abuse [Unknown]
  - Speech disorder [Recovering/Resolving]
  - Sopor [Recovering/Resolving]
